FAERS Safety Report 21591548 (Version 2)
Quarter: 2022Q4

REPORT INFORMATION
  Report Type: Spontaneous
  Country: BW (occurrence: BW)
  Receive Date: 20221114
  Receipt Date: 20221229
  Transmission Date: 20230113
  Serious: Yes (Hospitalization, Other)
  Sender: FDA-Public Use
  Company Number: BW-002147023-NVSC2022BW252199

PATIENT
  Age: 15 Year
  Sex: Male

DRUGS (5)
  1. GLIVEC [Suspect]
     Active Substance: IMATINIB MESYLATE
     Indication: Chronic myeloid leukaemia
     Dosage: UNK
     Route: 065
     Dates: start: 20210509
  2. GLIVEC [Suspect]
     Active Substance: IMATINIB MESYLATE
     Dosage: 400 MG (ONLY 5 DAYS A WEEK; UNTIL THE WEEK OF 31 AUG 2021)
     Route: 065
     Dates: start: 20210802
  3. GLIVEC [Suspect]
     Active Substance: IMATINIB MESYLATE
     Dosage: 800 MG, QD (2 CAPSULE)
     Route: 065
  4. GLIVEC [Suspect]
     Active Substance: IMATINIB MESYLATE
     Dosage: 400 MG, QD (08 SEP (UNKNOWN YEAR))
     Route: 065
  5. PIPERACILLIN AND TAZOBACTAM [Concomitant]
     Active Substance: PIPERACILLIN SODIUM\TAZOBACTAM SODIUM
     Indication: Febrile neutropenia
     Dosage: 4.5 GRAM PER GRAM, QID
     Route: 042
     Dates: start: 20210831, end: 20210910

REACTIONS (19)
  - Splenomegaly [Recovering/Resolving]
  - Pyrexia [Recovered/Resolved]
  - Abdominal pain [Unknown]
  - Anaemia [Unknown]
  - Pallor [Unknown]
  - Neutropenia [Unknown]
  - Vomiting [Unknown]
  - Thrombocytopenia [Unknown]
  - Palmoplantar keratoderma [Not Recovered/Not Resolved]
  - SARS-CoV-2 test positive [Unknown]
  - Pyrexia [Recovered/Resolved]
  - Malaise [Unknown]
  - Fatigue [Unknown]
  - Bacterial infection [Recovered/Resolved]
  - Bacillus test positive [Recovered/Resolved]
  - Cytogenetic analysis abnormal [Unknown]
  - Staphylococcal infection [Unknown]
  - Drug resistance [Unknown]
  - Inappropriate schedule of product administration [Unknown]

NARRATIVE: CASE EVENT DATE: 20210601
